FAERS Safety Report 5023851-1 (Version None)
Quarter: 2006Q2

REPORT INFORMATION
  Report Type: 
  Country: None (occurrence: None)
  Receive Date: 20060606
  Receipt Date: 20060516
  Transmission Date: 20061013
  Serious: Yes (Hospitalization, Disabling)
  Sender: FDA-Public Use
  Company Number: 405864

PATIENT
  Age: 22 Year
  Sex: Female
  Weight: 52.2 kg

DRUGS (1)
  1. ACCUTANE [Suspect]
     Indication: ACNE CYSTIC
     Dosage: 40 MG 1 PER DAY ORAL
     Route: 048
     Dates: start: 19960610, end: 19990212

REACTIONS (52)
  - ABORTION SPONTANEOUS [None]
  - ACNE [None]
  - ANXIETY [None]
  - APPENDICITIS [None]
  - AUTOIMMUNE THYROIDITIS [None]
  - CAESAREAN SECTION [None]
  - CHAPPED LIPS [None]
  - COLITIS [None]
  - COLITIS ULCERATIVE [None]
  - CONJUNCTIVITIS [None]
  - DEPRESSION [None]
  - DIZZINESS [None]
  - DRUG EXPOSURE DURING PREGNANCY [None]
  - DRY SKIN [None]
  - DYSMENORRHOEA [None]
  - EPISTAXIS [None]
  - FUNGAL INFECTION [None]
  - HAEMATOCRIT DECREASED [None]
  - HAEMOGLOBIN DECREASED [None]
  - HAEMORRHOIDS [None]
  - HEADACHE [None]
  - HIRSUTISM [None]
  - HYPERHIDROSIS [None]
  - HYPERSENSITIVITY [None]
  - INFLAMMATORY BOWEL DISEASE [None]
  - MENORRHAGIA [None]
  - MULTI-ORGAN DISORDER [None]
  - MUSCULOSKELETAL DISORDER [None]
  - MYALGIA [None]
  - NASOPHARYNGITIS [None]
  - NIGHT BLINDNESS [None]
  - OPTIC NERVE CUP/DISC RATIO INCREASED [None]
  - PELVIC INFLAMMATORY DISEASE [None]
  - PHARYNGITIS [None]
  - PREGNANCY [None]
  - PREMENSTRUAL SYNDROME [None]
  - PROCTITIS [None]
  - PROCTOCOLITIS [None]
  - RADICULOPATHY [None]
  - RASH [None]
  - RASH PAPULAR [None]
  - RED BLOOD CELL COUNT DECREASED [None]
  - SCAB [None]
  - SINUSITIS [None]
  - SPINAL OSTEOARTHRITIS [None]
  - STRESS [None]
  - TONSILLAR HYPERTROPHY [None]
  - UPPER RESPIRATORY TRACT INFECTION [None]
  - VISION BLURRED [None]
  - VITREOUS FLOATERS [None]
  - VULVOVAGINAL MYCOTIC INFECTION [None]
  - WEIGHT DECREASED [None]
